FAERS Safety Report 12014883 (Version 2)
Quarter: 2016Q1

REPORT INFORMATION
  Report Type: Report from Study
  Country: US (occurrence: US)
  Receive Date: 20160205
  Receipt Date: 20160218
  Transmission Date: 20160526
  Serious: Yes (Death)
  Sender: FDA-Public Use
  Company Number: US-B.I. PHARMACEUTICALS,INC./RIDGEFIELD-2015-BI-38866BP

PATIENT
  Sex: Male

DRUGS (1)
  1. OFEV [Suspect]
     Active Substance: NINTEDANIB
     Indication: IDIOPATHIC PULMONARY FIBROSIS
     Dosage: 200 MG
     Route: 048
     Dates: start: 20150615

REACTIONS (10)
  - Muscle spasms [Unknown]
  - Diarrhoea [Unknown]
  - Pulmonary fibrosis [Fatal]
  - Chills [Unknown]
  - Abdominal discomfort [Unknown]
  - Limb operation [Unknown]
  - Productive cough [Unknown]
  - Tremor [Unknown]
  - Vomiting [Unknown]
  - Dyspnoea [Unknown]
